FAERS Safety Report 6706173-X (Version None)
Quarter: 2010Q2

REPORT INFORMATION
  Report Type: 
  Country: None (occurrence: None)
  Receive Date: 20100503
  Receipt Date: 20100423
  Transmission Date: 20101027
  Serious: Yes (Disabling, Other)
  Sender: FDA-Public Use
  Company Number: IE-PFIZER INC-2010044435

PATIENT
  Age: 12 Year
  Sex: Male

DRUGS (3)
  1. ZARONTIN [Suspect]
     Indication: CONVULSION
     Dosage: 250 MG, 1X/DAY IN MORNING
  2. ZARONTIN [Suspect]
     Dosage: 500 MG, 1X/DAY AT NIGHT
  3. EPILIM [Concomitant]
     Dosage: UNK
     Route: 048

REACTIONS (2)
  - DECREASED APPETITE [None]
  - HYPOGLYCAEMIA [None]
